FAERS Safety Report 21957452 (Version 5)
Quarter: 2023Q1

REPORT INFORMATION
  Report Type: Spontaneous
  Country: US (occurrence: US)
  Receive Date: 20230206
  Receipt Date: 20230216
  Transmission Date: 20230418
  Serious: Yes (Other)
  Sender: FDA-Public Use
  Company Number: US-SANOFI-01474471

PATIENT
  Sex: Male

DRUGS (2)
  1. TOUJEO [Suspect]
     Active Substance: INSULIN GLARGINE
     Indication: Diabetes mellitus
     Dosage: UNK
  2. BAQSIMI [Concomitant]
     Active Substance: GLUCAGON

REACTIONS (5)
  - Loss of consciousness [Unknown]
  - Injection site bruising [Unknown]
  - Injection site pain [Unknown]
  - Hypoglycaemia unawareness [Unknown]
  - Blood glucose decreased [Unknown]

NARRATIVE: CASE EVENT DATE: 20230201
